FAERS Safety Report 13017231 (Version 1)
Quarter: 2016Q4

REPORT INFORMATION
  Report Type: Spontaneous
  Country: DK (occurrence: DK)
  Receive Date: 20161212
  Receipt Date: 20161212
  Transmission Date: 20170207
  Serious: Yes (Other)
  Sender: FDA-Public Use
  Company Number: DK-PFIZER INC-2016567180

PATIENT
  Age: 45 Year
  Sex: Female

DRUGS (3)
  1. XYLOCAINE [Concomitant]
     Active Substance: LIDOCAINE HYDROCHLORIDE
     Indication: PAIN IN EXTREMITY
     Dates: start: 20120808, end: 20120808
  2. ACTIVELLE [Concomitant]
     Active Substance: ESTRADIOL\NORETHINDRONE ACETATE
     Dates: start: 2015
  3. DEPO-MEDROL [Suspect]
     Active Substance: METHYLPREDNISOLONE ACETATE
     Indication: PAIN IN EXTREMITY
     Dosage: 1 ML, UNK
     Dates: start: 20120808, end: 20120808

REACTIONS (3)
  - Muscle disorder [Unknown]
  - Abdominal pain [Not Recovered/Not Resolved]
  - Addison^s disease [Unknown]

NARRATIVE: CASE EVENT DATE: 2012
